FAERS Safety Report 9894118 (Version 1)
Quarter: 2014Q1

REPORT INFORMATION
  Report Type: Spontaneous
  Country: FR (occurrence: FR)
  Receive Date: 20140213
  Receipt Date: 20140213
  Transmission Date: 20141002
  Serious: Yes (Hospitalization)
  Sender: FDA-Public Use
  Company Number: FR-PFIZER INC-2014036533

PATIENT
  Age: 63 Year
  Sex: Male

DRUGS (10)
  1. TAZOCILLINE [Suspect]
     Dosage: UNK
     Dates: start: 20131221
  2. VINCRISTINE SULFATE [Suspect]
     Dosage: UNK
     Route: 042
     Dates: start: 20131221
  3. DEXAMETHASONE MYLAN [Suspect]
     Dosage: UNK
     Route: 042
     Dates: start: 20131214, end: 20131218
  4. DEXAMETHASONE MYLAN [Suspect]
     Dosage: UNK
     Dates: start: 20131221
  5. TASIGNA [Suspect]
     Dosage: UNK
     Dates: start: 20131221
  6. DIAMICRON [Concomitant]
  7. ACTRAPID [Concomitant]
  8. CARDENSIEL [Concomitant]
  9. EUPANTOL [Concomitant]
  10. ENDOXAN [Concomitant]
     Dosage: UNK
     Dates: start: 20131218, end: 20131220

REACTIONS (2)
  - Polyuria [Recovered/Resolved]
  - Nephrogenic diabetes insipidus [Recovered/Resolved]
